FAERS Safety Report 8012184-7 (Version None)
Quarter: 2011Q4

REPORT INFORMATION
  Report Type: 
  Country: None (occurrence: None)
  Receive Date: 20111228
  Receipt Date: 20111219
  Transmission Date: 20120403
  Serious: Yes (Other)
  Sender: FDA-Public Use
  Company Number: FR-ASTRAZENECA-2011SE77338

PATIENT
  Age: 64 Year
  Sex: Male

DRUGS (5)
  1. ASPIRIN [Concomitant]
  2. CRESTOR [Suspect]
     Route: 048
     Dates: start: 20080101, end: 20111101
  3. FLUOXETINE [Concomitant]
  4. STRESAM [Concomitant]
  5. TANAKAN [Concomitant]

REACTIONS (1)
  - CATARACT [None]
